FAERS Safety Report 18406257 (Version 1)
Quarter: 2020Q4

REPORT INFORMATION
  Report Type: Spontaneous
  Country: US (occurrence: US)
  Receive Date: 20201020
  Receipt Date: 20201020
  Transmission Date: 20210114
  Serious: Yes (Hospitalization, Other)
  Sender: FDA-Public Use
  Company Number: US-PURDUE-USA-2020-0167984

PATIENT
  Sex: Female

DRUGS (9)
  1. HYDROCODONE BITARTRATE AND ACETAMINOPHEN [Suspect]
     Active Substance: ACETAMINOPHEN\HYDROCODONE BITARTRATE
     Indication: PAIN
     Dosage: UNK, 7.5- 325MG, 1 TABLET
     Route: 048
  2. VICODIN [Suspect]
     Active Substance: ACETAMINOPHEN\HYDROCODONE BITARTRATE
     Indication: PAIN
     Dosage: UNK, 70/MONTH FOR 4-6 MONTHS
     Route: 065
     Dates: start: 2009
  3. PERCOCET                           /00446701/ [Suspect]
     Active Substance: ACETAMINOPHEN\OXYCODONE HYDROCHLORIDE\OXYCODONE TEREPHTHALATE
     Indication: PAIN
     Dosage: UNK, 170 FOR ONE MOTH
     Route: 065
     Dates: start: 2015
  4. VICODIN [Suspect]
     Active Substance: ACETAMINOPHEN\HYDROCODONE BITARTRATE
     Indication: FIBROMYALGIA
     Dosage: UNK, 45/MONTH PERIODICALLY OR 1 YEAR
     Route: 065
     Dates: start: 2007, end: 2008
  5. VICODIN [Suspect]
     Active Substance: ACETAMINOPHEN\HYDROCODONE BITARTRATE
     Dosage: UNK 120/MONTH
     Route: 065
     Dates: start: 2010
  6. OXYCODONE/ ACETAMINOPHEN TABLETS [Suspect]
     Active Substance: ACETAMINOPHEN\OXYCODONE HYDROCHLORIDE
     Indication: PAIN
     Dosage: UNK
     Route: 048
  7. VICODIN [Suspect]
     Active Substance: ACETAMINOPHEN\HYDROCODONE BITARTRATE
     Dosage: UNK, 160/MONTH
     Route: 065
     Dates: start: 2015
  8. VICODIN [Suspect]
     Active Substance: ACETAMINOPHEN\HYDROCODONE BITARTRATE
     Dosage: UNK, 100/MONTH GFOR ABOUT 12-14 MONTHS
     Route: 065
     Dates: start: 2016
  9. VICODIN [Suspect]
     Active Substance: ACETAMINOPHEN\HYDROCODONE BITARTRATE
     Dosage: UNK, 112/MONTH FOR 1 YEAR
     Route: 065
     Dates: start: 2013

REACTIONS (9)
  - Fear [Unknown]
  - Suicide attempt [Unknown]
  - Depression [Unknown]
  - Stress [Unknown]
  - Cholecystectomy [Unknown]
  - Drug dependence [Unknown]
  - Anxiety [Unknown]
  - Drug tolerance [Unknown]
  - Gallbladder disorder [Unknown]

NARRATIVE: CASE EVENT DATE: 2016
